FAERS Safety Report 15800374 (Version 1)
Quarter: 2019Q1

REPORT INFORMATION
  Report Type: Report from Study
  Country: US (occurrence: US)
  Receive Date: 20190108
  Receipt Date: 20190108
  Transmission Date: 20190417
  Serious: Yes (Hospitalization)
  Sender: FDA-Public Use
  Company Number: US-ACTELION-A-US2018-168139

PATIENT
  Age: 58 Year
  Sex: Female
  Weight: 78.91 kg

DRUGS (3)
  1. OPSUMIT [Suspect]
     Active Substance: MACITENTAN
     Indication: PULMONARY ARTERIAL HYPERTENSION
     Dosage: 10 MG, UNK
     Route: 048
  2. VELETRI [Suspect]
     Active Substance: EPOPROSTENOL
     Dosage: 11 NG/KG, PER MIN
     Route: 042
  3. VELETRI [Suspect]
     Active Substance: EPOPROSTENOL
     Indication: PULMONARY ARTERIAL HYPERTENSION
     Dosage: 20 NG/KG, PER MIN
     Route: 042

REACTIONS (11)
  - Temporomandibular joint syndrome [Unknown]
  - Neuralgia [Unknown]
  - Catheter site vesicles [Unknown]
  - Flushing [Unknown]
  - Pain in jaw [Unknown]
  - Herpes zoster [Unknown]
  - Diabetic neuropathy [Unknown]
  - Catheter site pruritus [Unknown]
  - Condition aggravated [Unknown]
  - Hot flush [Unknown]
  - Salivary gland pain [Unknown]
